FAERS Safety Report 12047291 (Version 2)
Quarter: 2016Q1

REPORT INFORMATION
  Report Type: Report from Study
  Country: US (occurrence: US)
  Receive Date: 20160209
  Receipt Date: 20160317
  Transmission Date: 20160526
  Serious: Yes (Hospitalization, Other)
  Sender: FDA-Public Use
  Company Number: US-GILEAD-2016-0197061

PATIENT
  Age: 83 Year
  Sex: Female
  Weight: 44 kg

DRUGS (12)
  1. COUMADIN [Concomitant]
     Active Substance: WARFARIN SODIUM
  2. MELOXICAM. [Concomitant]
     Active Substance: MELOXICAM
  3. NIFEDIPINE. [Concomitant]
     Active Substance: NIFEDIPINE
  4. LEVOTHYROXINE. [Concomitant]
     Active Substance: LEVOTHYROXINE
  5. POTASSIUM CHLORIDE. [Concomitant]
     Active Substance: POTASSIUM CHLORIDE
  6. SILDENAFIL. [Concomitant]
     Active Substance: SILDENAFIL
  7. PREDNISONE. [Concomitant]
     Active Substance: PREDNISONE
  8. ATENOLOL. [Concomitant]
     Active Substance: ATENOLOL
  9. AMBRISENTAN [Suspect]
     Active Substance: AMBRISENTAN
     Indication: PULMONARY HYPERTENSION
     Dosage: 10 MG, QD
     Route: 065
     Dates: start: 20121102
  10. GABAPENTIN. [Concomitant]
     Active Substance: GABAPENTIN
  11. MAGNESIUM OXIDE. [Concomitant]
     Active Substance: MAGNESIUM OXIDE
  12. AMLODIPINE [Concomitant]
     Active Substance: AMLODIPINE BESYLATE

REACTIONS (2)
  - Vascular graft [Recovered/Resolved]
  - Vascular insufficiency [Unknown]

NARRATIVE: CASE EVENT DATE: 20160129
